FAERS Safety Report 23874510 (Version 2)
Quarter: 2024Q2

REPORT INFORMATION
  Report Type: Spontaneous
  Country: BR (occurrence: BR)
  Receive Date: 20240520
  Receipt Date: 20240530
  Transmission Date: 20240716
  Serious: Yes (Disabling, Other)
  Sender: FDA-Public Use
  Company Number: BR-NOVOPROD-1220204

PATIENT
  Age: 875 Month
  Sex: Male
  Weight: 90 kg

DRUGS (1)
  1. LEVEMIR [Suspect]
     Active Substance: INSULIN DETEMIR
     Indication: Diabetes mellitus
     Dosage: 76 IU, QD( 40 UNITS IN THE MORNING AND 36 UNITS IN THE AFTERNOON/EVENING)

REACTIONS (3)
  - Disability [Not Recovered/Not Resolved]
  - Spinal disorder [Not Recovered/Not Resolved]
  - Cholecystectomy [Unknown]

NARRATIVE: CASE EVENT DATE: 20100101
